FAERS Safety Report 8154430-5 (Version None)
Quarter: 2012Q1

REPORT INFORMATION
  Report Type: 
  Country: None (occurrence: None)
  Receive Date: 20120103
  Receipt Date: 20111027
  Transmission Date: 20120608
  Serious: No
  Sender: FDA-Public Use
  Company Number: AE-2011-002761

PATIENT
  Age: 60 Year
  Sex: Female

DRUGS (6)
  1. NEXIUM [Concomitant]
  2. TYLENOL PM (TYLENOL PM) [Concomitant]
  3. PEGASYS [Concomitant]
  4. PERCOCET [Concomitant]
  5. INCIVEK [Suspect]
     Dosage: 2250 MG (750 MG, 1 IN 8 HR), ORAL
     Route: 048
     Dates: start: 20111021
  6. RIBAVIRIN [Concomitant]

REACTIONS (1)
  - HEADACHE [None]
